FAERS Safety Report 11846380 (Version 1)
Quarter: 2015Q4

REPORT INFORMATION
  Report Type: Spontaneous
  Country: DE (occurrence: DE)
  Receive Date: 20151217
  Receipt Date: 20151217
  Transmission Date: 20160305
  Serious: Yes (Death)
  Sender: FDA-Public Use
  Company Number: DE-SA-2015SA211876

PATIENT
  Age: 52 Year
  Sex: Male
  Weight: 58 kg

DRUGS (2)
  1. VARGATEF [Suspect]
     Active Substance: NINTEDANIB
     Indication: BRONCHIAL CARCINOMA
     Dosage: 200 MG MILLIGRAM
     Route: 048
     Dates: start: 20150822, end: 20151008
  2. TAXOTERE [Suspect]
     Active Substance: DOCETAXEL
     Indication: BRONCHIAL CARCINOMA
     Route: 042
     Dates: start: 20150821, end: 20151002

REACTIONS (1)
  - Pneumonitis [Fatal]

NARRATIVE: CASE EVENT DATE: 20151026
